FAERS Safety Report 9162505 (Version 1)
Quarter: 2013Q1

REPORT INFORMATION
  Report Type: Spontaneous
  Country: FR (occurrence: None)
  Receive Date: 20130215
  Receipt Date: 20130215
  Transmission Date: 20140127
  Serious: Yes (Other)
  Sender: FDA-Public Use
  Company Number: 2013000021

PATIENT
  Age: 75 Year
  Sex: Male

DRUGS (1)
  1. ACEON [Suspect]
     Indication: HYPERTENSION
     Route: 048
     Dates: start: 20120918, end: 20121020

REACTIONS (2)
  - VIIth nerve paralysis [None]
  - Product substitution issue [None]
